FAERS Safety Report 12526856 (Version 2)
Quarter: 2016Q4

REPORT INFORMATION
  Report Type: Spontaneous
  Country: AU (occurrence: AU)
  Receive Date: 20160705
  Receipt Date: 20161109
  Transmission Date: 20170207
  Serious: Yes (Other)
  Sender: FDA-Public Use
  Company Number: AU-SUN PHARMACEUTICAL INDUSTRIES LTD-2016RR-119681

PATIENT
  Age: 64 Year
  Sex: Male

DRUGS (5)
  1. ABCIXIMAB [Suspect]
     Active Substance: ABCIXIMAB
     Indication: CORONARY ARTERY DISEASE
     Dosage: 0.25 MG/KG, UNK
     Route: 042
  2. HEPARIN [Suspect]
     Active Substance: HEPARIN SODIUM
     Indication: CORONARY ARTERY DISEASE
     Dosage: 70 U/KG
     Route: 040
  3. ASPIRIN. [Suspect]
     Active Substance: ASPIRIN
     Indication: CORONARY ARTERY DISEASE
     Dosage: 300 MG, UNK
     Route: 048
  4. PRASUGREL [Suspect]
     Active Substance: PRASUGREL
     Indication: CORONARY ARTERY DISEASE
     Dosage: 60 MG, UNK
     Route: 048
  5. ABCIXIMAB [Suspect]
     Active Substance: ABCIXIMAB
     Dosage: 0.125 ?G/KG/MIN, FOR 12 H
     Route: 042

REACTIONS (2)
  - Spinal subdural haematoma [Recovering/Resolving]
  - Paralysis [Recovering/Resolving]
